FAERS Safety Report 5894057-9 (Version None)
Quarter: 2008Q3

REPORT INFORMATION
  Report Type: 
  Country: None (occurrence: None)
  Receive Date: 20080923
  Receipt Date: 20080913
  Transmission Date: 20090109
  Serious: Yes (Hospitalization)
  Sender: FDA-Public Use
  Company Number: US-ELI_LILLY_AND_COMPANY-US200809003314

PATIENT
  Sex: Female
  Weight: 90.703 kg

DRUGS (10)
  1. BYETTA [Suspect]
     Indication: TYPE 2 DIABETES MELLITUS
     Dosage: 5 UG, 2/D
     Route: 058
     Dates: start: 20070101, end: 20070101
  2. BYETTA [Suspect]
     Dosage: 10 UG, 2/D
     Route: 058
     Dates: start: 20070101
  3. METOPROLOL TARTRATE [Concomitant]
     Indication: CARDIAC DISORDER
     Dosage: 50 MG, 2/D
  4. FEXOFENADINE [Concomitant]
     Indication: HYPERSENSITIVITY
     Dosage: 180 MG, AS NEEDED
  5. PROPOXYPHENE HCL AND ACETAMINOPHEN [Concomitant]
     Indication: BACK PAIN
     Dosage: UNK, EVERY 6 HRS
  6. LEVOTHYROXINE SODIUM [Concomitant]
     Indication: HYPOTHYROIDISM
     Dosage: UNK, DAILY (1/D)
     Dates: start: 19800101
  7. HYDROCHLOROTHIAZIDE [Concomitant]
     Indication: BLOOD PRESSURE
     Dosage: UNK, DAILY (1/D)
  8. GLIPIZIDE [Concomitant]
     Indication: TYPE 2 DIABETES MELLITUS
     Dosage: 5 MG, DAILY (1/D)
  9. NEXIUM [Concomitant]
     Indication: DYSPEPSIA
     Dosage: 40 MG, DAILY (1/D)
  10. OMACOR [Concomitant]

REACTIONS (11)
  - CHEST PAIN [None]
  - CONSTIPATION [None]
  - COUGH [None]
  - DIARRHOEA [None]
  - DYSPEPSIA [None]
  - ERUCTATION [None]
  - NAUSEA [None]
  - PNEUMONIA [None]
  - PULMONARY HYPERTENSION [None]
  - VOMITING [None]
  - WEIGHT DECREASED [None]
